FAERS Safety Report 6783707-0 (Version None)
Quarter: 2010Q2

REPORT INFORMATION
  Report Type: 
  Country: None (occurrence: None)
  Receive Date: 20100622
  Receipt Date: 20100614
  Transmission Date: 20101027
  Serious: Yes (Death)
  Sender: FDA-Public Use
  Company Number: BE-ROCHE-709878

PATIENT
  Sex: Female

DRUGS (4)
  1. XELODA [Suspect]
     Route: 048
     Dates: start: 20100512, end: 20100514
  2. LEVOTHYROXINE SODIUM [Concomitant]
     Indication: HYPOTHYROIDISM
     Route: 048
  3. STEOVIT D3 [Concomitant]
     Indication: OSTEOPENIA
     Dosage: DRUG IS REPORTED AS: STEOVIT D3:500/400, DOSE:CACARB:1.25G, COLEC: 400IU, FREQUENCY:DAILY
     Route: 048
  4. ASPIRIN [Concomitant]
     Dosage: FREQUENCY:DAILY
     Route: 048

REACTIONS (1)
  - CARDIAC DEATH [None]
